FAERS Safety Report 24601318 (Version 1)
Quarter: 2024Q4

REPORT INFORMATION
  Report Type: Report from Study
  Country: US (occurrence: US)
  Receive Date: 20241111
  Receipt Date: 20241111
  Transmission Date: 20250115
  Serious: Yes (Hospitalization)
  Sender: NOVARTIS
  Company Number: US-002147023-NVSC2024US215565

PATIENT
  Sex: Male
  Weight: 122 kg

DRUGS (1)
  1. TRILEPTAL [Suspect]
     Active Substance: OXCARBAZEPINE
     Indication: Trigeminal neuralgia
     Dosage: 300 MG, 4 TIMES A DAY
     Route: 048
     Dates: start: 20160119

REACTIONS (7)
  - Acute kidney injury [Unknown]
  - Dysarthria [Unknown]
  - Dyspnoea [Unknown]
  - Pyrexia [Unknown]
  - Dizziness [Unknown]
  - Pneumonia [Unknown]
  - Pleural effusion [Unknown]
